FAERS Safety Report 5822820-9 (Version None)
Quarter: 2008Q3

REPORT INFORMATION
  Report Type: 
  Country: None (occurrence: None)
  Receive Date: 20080725
  Receipt Date: 20080710
  Transmission Date: 20090109
  Serious: Yes (Hospitalization)
  Sender: FDA-Public Use
  Company Number: JP-ASTRAZENECA-2008AP01818

PATIENT
  Age: 39 Year
  Sex: Female
  Weight: 63 kg

DRUGS (7)
  1. CRESTOR [Suspect]
     Indication: HYPERLIPIDAEMIA
     Route: 048
     Dates: start: 20080213, end: 20080303
  2. OMEPRAL [Concomitant]
     Indication: REFLUX OESOPHAGITIS
     Route: 048
     Dates: start: 20070501, end: 20080303
  3. DEPAS [Concomitant]
     Indication: ANXIETY
     Route: 048
     Dates: start: 20070501, end: 20080303
  4. CELTECT [Concomitant]
     Indication: RHINITIS ALLERGIC
     Route: 048
     Dates: start: 20070501, end: 20080303
  5. LOXONIN [Concomitant]
     Indication: MYALGIA
     Route: 048
     Dates: start: 20070501, end: 20080303
  6. ALENDRONATE SODIUM [Concomitant]
     Indication: OSTEOPOROSIS
     Route: 048
     Dates: start: 20070501, end: 20080303
  7. PREDNISOLONE [Concomitant]
     Indication: EOSINOPHILIC FASCIITIS
     Route: 048
     Dates: start: 20070501

REACTIONS (2)
  - JAUNDICE [None]
  - OPTIC NEURITIS [None]
